FAERS Safety Report 19947873 (Version 5)
Quarter: 2022Q2

REPORT INFORMATION
  Report Type: Spontaneous
  Country: US (occurrence: US)
  Receive Date: 20211012
  Receipt Date: 20220406
  Transmission Date: 20220721
  Serious: No
  Sender: FDA-Public Use
  Company Number: US-SA-SAC20210427001567

PATIENT

DRUGS (1)
  1. LOVENOX [Suspect]
     Active Substance: ENOXAPARIN SODIUM
     Dosage: 40 MG
     Route: 065

REACTIONS (5)
  - Occupational exposure to product [Unknown]
  - Injury associated with device [Unknown]
  - Device safety feature issue [Unknown]
  - Wrong technique in device usage process [Unknown]
  - Device malfunction [Unknown]
